FAERS Safety Report 4483518-5 (Version None)
Quarter: 2004Q4

REPORT INFORMATION
  Report Type: 
  Country: None (occurrence: None)
  Receive Date: 20041025
  Receipt Date: 20041013
  Transmission Date: 20050328
  Serious: Yes (Other)
  Sender: FDA-Public Use
  Company Number: JP-JNJFOC-20040903168

PATIENT
  Sex: Male

DRUGS (5)
  1. REMICADE [Suspect]
     Indication: RHEUMATOID ARTHRITIS
     Dosage: 5 DOSES RECEIVED
     Route: 042
  2. RHEUMATREX [Concomitant]
  3. METALCAPTASE [Concomitant]
     Dosage: 2 CAPSULES
  4. CLINORIL [Concomitant]
     Dosage: 3 TABLETS
  5. PYDOXAL [Concomitant]
     Dosage: 2 TABLETS

REACTIONS (4)
  - GASTRIC CANCER [None]
  - HAEMATOCRIT DECREASED [None]
  - RED BLOOD CELLS URINE POSITIVE [None]
  - WHITE BLOOD CELLS URINE POSITIVE [None]
